FAERS Safety Report 15367329 (Version 1)
Quarter: 2018Q3

REPORT INFORMATION
  Report Type: Spontaneous
  Country: US (occurrence: US)
  Receive Date: 20180910
  Receipt Date: 20180910
  Transmission Date: 20181010
  Serious: Yes (Hospitalization)
  Sender: FDA-Public Use
  Company Number: US-SA-2017SA147876

PATIENT
  Age: 75 Year
  Sex: Female

DRUGS (3)
  1. APIDRA SOLOSTAR [Suspect]
     Active Substance: INSULIN GLULISINE
     Indication: TYPE 1 DIABETES MELLITUS
     Dosage: DOSE? SLIDING SCALE FREQUENCY? WITH MEALS
     Route: 058
  2. LANTUS [Suspect]
     Active Substance: INSULIN GLARGINE
     Indication: TYPE 1 DIABETES MELLITUS
     Dosage: 32 UNITS AT BEDTIME
     Route: 058
  3. APIDRA SOLOSTAR [Suspect]
     Active Substance: INSULIN GLULISINE
     Dosage: UNK

REACTIONS (5)
  - Pain [Recovering/Resolving]
  - Spinal fracture [Recovering/Resolving]
  - Blood glucose fluctuation [Unknown]
  - Memory impairment [Unknown]
  - Expired product administered [Unknown]
